FAERS Safety Report 7276576-6 (Version None)
Quarter: 2011Q1

REPORT INFORMATION
  Report Type: 
  Country: None (occurrence: None)
  Receive Date: 20110204
  Receipt Date: 20110131
  Transmission Date: 20110831
  Serious: Yes (Life-Threatening)
  Sender: FDA-Public Use
  Company Number: FR-ASTRAZENECA-2011SE05579

PATIENT
  Age: 58 Year
  Sex: Male

DRUGS (6)
  1. SUCCINYLCHOLINE CHLORIDE [Suspect]
     Route: 042
     Dates: start: 20101102, end: 20101102
  2. AMLOR [Concomitant]
     Indication: HYPERTENSION
  3. COVERSYL [Concomitant]
     Indication: HYPERTENSION
  4. HYPNOVEL [Suspect]
     Route: 042
     Dates: start: 20101102, end: 20101102
  5. DIPRIVAN [Suspect]
     Route: 042
     Dates: start: 20101102, end: 20101102
  6. SUFENTA PRESERVATIVE FREE [Suspect]
     Route: 042
     Dates: start: 20101102, end: 20101102

REACTIONS (1)
  - ANAPHYLACTIC SHOCK [None]
